FAERS Safety Report 15417001 (Version 2)
Quarter: 2018Q4

REPORT INFORMATION
  Report Type: Spontaneous
  Country: IT (occurrence: IT)
  Receive Date: 20180924
  Receipt Date: 20181003
  Transmission Date: 20190204
  Serious: Yes (Other)
  Sender: FDA-Public Use
  Company Number: IT-AUROBINDO-AUR-APL-2018-000319

PATIENT
  Age: 70 Year
  Sex: Male

DRUGS (24)
  1. IRINOTECAN CONCENTRATE FOR SOLUTION FOR INFUSION [Suspect]
     Active Substance: IRINOTECAN
     Dosage: 180 MILLIGRAM/SQ. METER, 2 WEEKS
     Route: 065
     Dates: start: 201501, end: 201501
  2. FOLINIC ACID [Suspect]
     Active Substance: LEUCOVORIN
     Dosage: 200 MG/M2,QOW
     Route: 065
     Dates: start: 201410, end: 201410
  3. FLUOROURACIL. [Suspect]
     Active Substance: FLUOROURACIL
     Dosage: D1:400/MG/M^2, THEN 2400 MG/M^2
     Route: 040
     Dates: start: 201410, end: 201501
  4. PANITUMUMAB [Suspect]
     Active Substance: PANITUMUMAB
     Dosage: 60% OF THE ORIGINAL DOSE, Q3WK3.6 MG/KG, Q3WK
     Route: 042
     Dates: start: 201506, end: 201506
  5. BEVACIZUMAB. [Suspect]
     Active Substance: BEVACIZUMAB
     Dosage: 7.5 UNK, CYCLICAL,ON D1 OF THE 3-WEEKLY CYCLE, FOR 7 CYCLES ; CYCLICAL
     Route: 065
     Dates: start: 201204, end: 201312
  6. LEUCOVORIN                         /00566701/ [Suspect]
     Active Substance: LEUCOVORIN
     Dosage: 200 MG/M2, 2 HR INFUSION (Q2WK)
     Route: 065
     Dates: start: 201410, end: 201501
  7. IRINOTECAN CONCENTRATE FOR SOLUTION FOR INFUSION [Suspect]
     Active Substance: IRINOTECAN
     Indication: OFF LABEL USE
     Dosage: 180 MG/M2, Q2WK
     Route: 065
     Dates: start: 201410, end: 201501
  8. PANITUMUMAB [Suspect]
     Active Substance: PANITUMUMAB
     Dosage: 6 MG/KG, Q2WK (EVERY 14 DAYS)
     Route: 016
     Dates: start: 201410, end: 201506
  9. PANITUMUMAB [Suspect]
     Active Substance: PANITUMUMAB
     Indication: ADENOCARCINOMA OF COLON
     Dosage: ON DAY 1
     Route: 065
     Dates: start: 201410
  10. PANITUMUMAB [Suspect]
     Active Substance: PANITUMUMAB
     Dosage: 6 MG/KG, Q2WK (EVERY 14 DAYS)
     Route: 065
     Dates: start: 201410, end: 201505
  11. FLUOROURACIL. [Suspect]
     Active Substance: FLUOROURACIL
     Indication: ADENOCARCINOMA OF COLON
     Dosage: UNK
     Route: 065
     Dates: start: 200908, end: 200909
  12. BEVACIZUMAB. [Suspect]
     Active Substance: BEVACIZUMAB
     Dosage: ON D1 OF THE 3-WEEKLY CYCLE, FOR 7 CYCLES ; CYCLICAL
     Route: 065
     Dates: start: 201312, end: 201312
  13. CAPECITABINE. [Suspect]
     Active Substance: CAPECITABINE
     Indication: ADENOCARCINOMA OF COLON
     Dosage: 1000 MG/M2, Q3WK (FROM D1-14 EVERY 21D )
     Route: 065
     Dates: start: 201204, end: 201312
  14. FOLINIC ACID [Suspect]
     Active Substance: LEUCOVORIN
     Dosage: AS A 2-H INFUSION ON DAY 1
     Route: 065
     Dates: start: 201410, end: 201501
  15. FOLINIC ACID [Suspect]
     Active Substance: LEUCOVORIN
     Dosage: 200 MG/M2,QOW
     Route: 065
     Dates: start: 201501, end: 201501
  16. BEVACIZUMAB. [Suspect]
     Active Substance: BEVACIZUMAB
     Dosage: 7.5 MILLIGRAM/KILOGRAM, ON D1 OF THE 3-WEEKLY CYCLE, FOR 7 CYCLES ; CYCLICAL
     Route: 065
     Dates: start: 201312
  17. LEUCOVORIN                         /00566701/ [Suspect]
     Active Substance: LEUCOVORIN
     Indication: ADENOCARCINOMA OF COLON
     Dosage: UNK
     Route: 065
     Dates: start: 200908, end: 200911
  18. IRINOTECAN CONCENTRATE FOR SOLUTION FOR INFUSION [Suspect]
     Active Substance: IRINOTECAN
     Indication: ADENOCARCINOMA OF COLON
     Dosage: 180 MILLIGRAM/SQ. METER, 2 WEEKS
     Route: 065
     Dates: start: 201410, end: 201410
  19. OXALIPLATIN. [Suspect]
     Active Substance: OXALIPLATIN
     Indication: ADENOCARCINOMA OF COLON
     Dosage: UNK
     Route: 065
     Dates: start: 200908, end: 200911
  20. BEVACIZUMAB. [Suspect]
     Active Substance: BEVACIZUMAB
     Indication: ADENOCARCINOMA OF COLON
     Dosage: 7.5 MG/KG,QCY ; CYCLICAL
     Route: 065
     Dates: start: 201204, end: 201204
  21. OXALIPLATIN. [Suspect]
     Active Substance: OXALIPLATIN
     Dosage: ON DAY 1, FOR 7 CYCLES, CYCLICAL
     Route: 065
     Dates: start: 201204
  22. PANITUMUMAB [Suspect]
     Active Substance: PANITUMUMAB
     Dosage: 3.6 MG/KG, 60% OF THE ORIGINAL DOSE, Q3WK
     Route: 042
     Dates: start: 20150601, end: 20150601
  23. FOLINIC ACID [Suspect]
     Active Substance: LEUCOVORIN
     Indication: ADENOCARCINOMA OF COLON
     Dosage: 200 MG/M2,QOW
     Route: 065
     Dates: start: 200908, end: 200911
  24. FLUOROURACIL. [Suspect]
     Active Substance: FLUOROURACIL
     Dosage: D1:400/MG/M^2, THEN 2400 MG/M^2
     Route: 040
     Dates: start: 201410, end: 201501

REACTIONS (8)
  - Diarrhoea [Unknown]
  - Palmar-plantar erythrodysaesthesia syndrome [Unknown]
  - Off label use [Unknown]
  - Skin toxicity [Unknown]
  - Asthenia [Unknown]
  - Drug effective for unapproved indication [Unknown]
  - Neuropathy peripheral [Unknown]
  - Neutropenia [Unknown]

NARRATIVE: CASE EVENT DATE: 20141001
